FAERS Safety Report 24977026 (Version 2)
Quarter: 2025Q1

REPORT INFORMATION
  Report Type: Spontaneous
  Country: FR (occurrence: FR)
  Receive Date: 20250217
  Receipt Date: 20250313
  Transmission Date: 20250408
  Serious: Yes (Hospitalization, Other)
  Sender: ANI
  Company Number: FR-ANIPHARMA-2025-FR-000029

PATIENT
  Age: 76 Year
  Sex: Female
  Weight: 74 kg

DRUGS (11)
  1. CANDESARTAN CILEXETIL [Suspect]
     Active Substance: CANDESARTAN CILEXETIL
     Indication: Product used for unknown indication
     Dates: end: 20241018
  2. BROMAZEPAM [Concomitant]
     Active Substance: BROMAZEPAM
  3. FOLIC ACID [Concomitant]
     Active Substance: FOLIC ACID
  4. HYDROCORTISONE [Suspect]
     Active Substance: HYDROCORTISONE
  5. VENLAFAXINE [Suspect]
     Active Substance: VENLAFAXINE HYDROCHLORIDE
  6. CLOBETASOL PROPIONATE [Suspect]
     Active Substance: CLOBETASOL PROPIONATE
     Dates: start: 20240828
  7. FUROSEMIDE [Suspect]
     Active Substance: FUROSEMIDE
  8. METFORMIN HYDROCHLORIDE [Suspect]
     Active Substance: METFORMIN HYDROCHLORIDE
  9. POTASSIUM CHLORIDE [Suspect]
     Active Substance: POTASSIUM CHLORIDE
  10. METHOTREXATE [Concomitant]
     Active Substance: METHOTREXATE
  11. ELIQUIS [Concomitant]
     Active Substance: APIXABAN

REACTIONS (10)
  - General physical health deterioration [None]
  - Oedema peripheral [Unknown]
  - Hypothalamic pituitary adrenal axis suppression [Unknown]
  - Fall [Unknown]
  - Dysstasia [Unknown]
  - Cardiac failure [Unknown]
  - Pulmonary embolism [Unknown]
  - Dyspnoea [Recovering/Resolving]
  - Asthenia [Unknown]
  - Fall [Unknown]

NARRATIVE: CASE EVENT DATE: 20240101
